FAERS Safety Report 8021714-0 (Version None)
Quarter: 2012Q1

REPORT INFORMATION
  Report Type: 
  Country: None (occurrence: None)
  Receive Date: 20120104
  Receipt Date: 20111228
  Transmission Date: 20120608
  Serious: Yes (Hospitalization)
  Sender: FDA-Public Use
  Company Number: PHFR2011GB006452

PATIENT
  Sex: Female

DRUGS (1)
  1. CLOZARIL [Suspect]
     Route: 048
     Dates: start: 20110630

REACTIONS (5)
  - NEUTROPHILIA [None]
  - PNEUMONIA [None]
  - LEUKOCYTOSIS [None]
  - URINARY TRACT INFECTION [None]
  - DIFFERENTIAL WHITE BLOOD CELL COUNT ABNORMAL [None]
